FAERS Safety Report 9976834 (Version 1)
Quarter: 2014Q1

REPORT INFORMATION
  Report Type: Report from Study
  Country: US (occurrence: US)
  Receive Date: 20140306
  Receipt Date: 20140306
  Transmission Date: 20141002
  Serious: No
  Sender: FDA-Public Use
  Company Number: US-ABBVIE-13P-163-1166262-00

PATIENT
  Age: 58 Year
  Sex: Male

DRUGS (4)
  1. HUMIRA [Suspect]
     Indication: COLITIS ULCERATIVE
     Dates: start: 20130906, end: 20130906
  2. HUMIRA [Suspect]
     Dates: start: 20130921, end: 20130921
  3. HUMIRA [Suspect]
     Dates: start: 20131005
  4. DIAZEPAM [Concomitant]
     Indication: INSOMNIA
     Dosage: AT BEDTIME

REACTIONS (7)
  - Pain [Recovering/Resolving]
  - Frequent bowel movements [Recovering/Resolving]
  - Malaise [Recovering/Resolving]
  - Myalgia [Not Recovered/Not Resolved]
  - Multiple allergies [Not Recovered/Not Resolved]
  - Viral infection [Recovering/Resolving]
  - Nausea [Recovering/Resolving]
